FAERS Safety Report 21740865 (Version 2)
Quarter: 2022Q4

REPORT INFORMATION
  Report Type: Spontaneous
  Country: BG (occurrence: BG)
  Receive Date: 20221216
  Receipt Date: 20221220
  Transmission Date: 20230113
  Serious: Yes (Other)
  Sender: FDA-Public Use
  Company Number: BG-002147023-NVSC2022BG243876

PATIENT
  Age: 58 Year
  Sex: Male

DRUGS (1)
  1. COSENTYX [Suspect]
     Active Substance: SECUKINUMAB
     Indication: Psoriasis
     Dosage: 300 MG (SCHEMA)
     Route: 058
     Dates: start: 202205, end: 20220925

REACTIONS (6)
  - Osteonecrosis [Unknown]
  - Arthralgia [Unknown]
  - Gait disturbance [Unknown]
  - Joint effusion [Unknown]
  - Bone marrow oedema [Unknown]
  - Joint space narrowing [Unknown]

NARRATIVE: CASE EVENT DATE: 20220501
